FAERS Safety Report 17717564 (Version 5)
Quarter: 2020Q3

REPORT INFORMATION
  Report Type: Report from Study
  Country: CA (occurrence: CA)
  Receive Date: 20200428
  Receipt Date: 20200915
  Transmission Date: 20201102
  Serious: Yes (Other)
  Sender: FDA-Public Use
  Company Number: PHHY2017CA012348

PATIENT
  Sex: Male

DRUGS (5)
  1. JAKAVI [Suspect]
     Active Substance: RUXOLITINIB
     Dosage: 35 MG, QD
     Route: 048
  2. JAKAVI [Suspect]
     Active Substance: RUXOLITINIB
     Dosage: 10 MG, BID
     Route: 065
  3. JADENU [Suspect]
     Active Substance: DEFERASIROX
     Indication: MYELOFIBROSIS
     Dosage: UNK
     Route: 065
  4. JAKAVI [Suspect]
     Active Substance: RUXOLITINIB
     Indication: MYELOFIBROSIS
     Dosage: 40 MG, QD
     Route: 048
  5. JADENU [Suspect]
     Active Substance: DEFERASIROX
     Dosage: 360 MG, TID (1 TAB OF 360 MG IN THE MORNING AND 2 TABS IN THE AFTERNOON)
     Route: 048

REACTIONS (5)
  - Serum ferritin increased [Unknown]
  - Lower limb fracture [Unknown]
  - Blood disorder [Unknown]
  - Fatigue [Unknown]
  - Influenza [Unknown]
